FAERS Safety Report 10183363 (Version 1)
Quarter: 2014Q2

REPORT INFORMATION
  Report Type: Spontaneous
  Country: ZA (occurrence: ZA)
  Receive Date: 20140520
  Receipt Date: 20140520
  Transmission Date: 20141212
  Serious: Yes (Hospitalization)
  Sender: FDA-Public Use
  Company Number: ZA-PFIZER INC-2014136959

PATIENT
  Age: 48 Year
  Sex: Female

DRUGS (1)
  1. CYKLOKAPRON [Suspect]

REACTIONS (1)
  - Electrocardiogram QT interval abnormal [Unknown]
